FAERS Safety Report 24912464 (Version 1)
Quarter: 2025Q1

REPORT INFORMATION
  Report Type: Spontaneous
  Country: US (occurrence: US)
  Receive Date: 20250131
  Receipt Date: 20250131
  Transmission Date: 20250409
  Serious: No
  Sender: ELI LILLY AND COMPANY
  Company Number: US-ELI_LILLY_AND_COMPANY-US202501021684

PATIENT
  Age: 65 Year
  Sex: Female

DRUGS (1)
  1. VERZENIO [Suspect]
     Active Substance: ABEMACICLIB
     Indication: Cervix carcinoma
     Dosage: 100 MG, BID
     Route: 048

REACTIONS (5)
  - Feeding disorder [Unknown]
  - Weight decreased [Unknown]
  - Taste disorder [Unknown]
  - Decreased appetite [Unknown]
  - Off label use [Unknown]
